FAERS Safety Report 17089335 (Version 1)
Quarter: 2019Q4

REPORT INFORMATION
  Report Type: Spontaneous
  Country: CN (occurrence: CN)
  Receive Date: 20191128
  Receipt Date: 20191128
  Transmission Date: 20200122
  Serious: Yes (Hospitalization, Other)
  Sender: FDA-Public Use
  Company Number: CN-GLAXOSMITHKLINE-CN2019APC210890

PATIENT

DRUGS (1)
  1. LAMICTAL [Suspect]
     Active Substance: LAMOTRIGINE
     Indication: EPILEPSY
     Dosage: UNK,50 MG
     Route: 048
     Dates: start: 20190903

REACTIONS (5)
  - Wound [Unknown]
  - Blood blister [Unknown]
  - Scab [Unknown]
  - Skin exfoliation [Unknown]
  - Rash [Recovering/Resolving]
